FAERS Safety Report 20038546 (Version 3)
Quarter: 2021Q4

REPORT INFORMATION
  Report Type: Spontaneous
  Country: JP (occurrence: JP)
  Receive Date: 20211105
  Receipt Date: 20211126
  Transmission Date: 20220303
  Serious: Yes (Disabling)
  Sender: FDA-Public Use
  Company Number: JP-Eisai-202107269_LUN_P_1

PATIENT
  Age: 57 Year
  Sex: Female

DRUGS (2)
  1. LUNESTA [Suspect]
     Active Substance: ESZOPICLONE
     Indication: Insomnia
     Dosage: DOSE UNKNOWN
     Route: 048
     Dates: start: 20210706
  2. SULPIRIDE [Concomitant]
     Active Substance: SULPIRIDE
     Indication: Autonomic nervous system imbalance
     Dosage: 50 MG, BID
     Route: 048

REACTIONS (3)
  - Taste disorder [Recovered/Resolved with Sequelae]
  - Dysgeusia [Recovered/Resolved]
  - Parosmia [Recovered/Resolved with Sequelae]
